FAERS Safety Report 24122296 (Version 2)
Quarter: 2024Q3

REPORT INFORMATION
  Report Type: Report from Study
  Country: AR (occurrence: AR)
  Receive Date: 20240722
  Receipt Date: 20240731
  Transmission Date: 20241016
  Serious: Yes (Hospitalization, Other)
  Sender: BIOGEN
  Company Number: AR-BIOGEN-2024BI01245944

PATIENT
  Sex: Female

DRUGS (2)
  1. SPINRAZA [Suspect]
     Active Substance: NUSINERSEN
     Indication: Spinal muscular atrophy
     Dosage: LAST APPLICATION ON 08-SEP-2023
     Route: 050
     Dates: start: 20180202, end: 20230908
  2. SPINRAZA [Suspect]
     Active Substance: NUSINERSEN
     Dosage: LAST APPLICATION ON?28JUN2024
     Route: 050
     Dates: start: 20230908, end: 20240628

REACTIONS (8)
  - Scoliosis [Unknown]
  - Infection [Not Recovered/Not Resolved]
  - Headache [Recovered/Resolved]
  - Neurological procedural complication [Not Recovered/Not Resolved]
  - Neurological complication associated with device [Unknown]
  - Post procedural persistent drain fluid [Recovered/Resolved]
  - Post lumbar puncture syndrome [Unknown]
  - Vomiting [Recovered/Resolved]

NARRATIVE: CASE EVENT DATE: 20230101
